FAERS Safety Report 9851708 (Version 3)
Quarter: 2014Q1

REPORT INFORMATION
  Report Type: Spontaneous
  Country: ES (occurrence: ES)
  Receive Date: 20140129
  Receipt Date: 20140207
  Transmission Date: 20141002
  Serious: No
  Sender: FDA-Public Use
  Company Number: ES-AMGEN-ESPSP2013081450

PATIENT
  Age: 52 Year
  Sex: Male

DRUGS (7)
  1. ENBREL [Suspect]
     Indication: ANKYLOSING SPONDYLITIS
     Dosage: 50 MG, ONCE WEEKLY
     Route: 065
     Dates: start: 20131105
  2. SALAZOPYRINE [Concomitant]
     Indication: ASTHMA
     Dosage: 2 TABLETS, TWICE DAILY (TWO TABLETS IN THE MORNING AND TWO TABLETS AT NIGHT)
  3. CEMIDON [Concomitant]
     Dosage: ONE TABLET, DAILY
  4. LORAZEPAM [Concomitant]
     Indication: NERVOUSNESS
     Dosage: 1 MG (ONE TABLET), DAILY
  5. SPIRIVA [Concomitant]
     Indication: ASTHMA
     Dosage: UNK, TWICE DAILY (IN THE MORNING AND AT NIGHT)
  6. SERETIDE [Concomitant]
     Indication: ASTHMA
     Dosage: UNK, ONCE DAILY (IN THE MORNING)
  7. HIDROFEROL [Concomitant]
     Indication: VITAMIN D DEFICIENCY
     Dosage: 1 AMPOULE, EVERY 3 WEEKS

REACTIONS (2)
  - Pain [Not Recovered/Not Resolved]
  - Drug ineffective [Not Recovered/Not Resolved]
